FAERS Safety Report 8470894-1 (Version None)
Quarter: 2012Q2

REPORT INFORMATION
  Report Type: 
  Country: None (occurrence: None)
  Receive Date: 20120627
  Receipt Date: 20120621
  Transmission Date: 20120825
  Serious: Yes (Death)
  Sender: FDA-Public Use
  Company Number: US-PFIZER INC-2012150461

PATIENT
  Sex: Male

DRUGS (1)
  1. SUTENT [Suspect]
     Indication: PLEURAL NEOPLASM
     Dosage: 50 MG, 1X/DAY- 4 WEEKS ON 2 WEEKS OFF
     Dates: start: 20120413

REACTIONS (1)
  - DEATH [None]
